FAERS Safety Report 25547715 (Version 1)
Quarter: 2025Q3

REPORT INFORMATION
  Report Type: Spontaneous
  Country: EU (occurrence: EU)
  Receive Date: 20250714
  Receipt Date: 20250714
  Transmission Date: 20251021
  Serious: Yes (Hospitalization)
  Sender: ACCORD
  Company Number: None

PATIENT
  Age: 69 Year
  Sex: Female
  Weight: 50 kg

DRUGS (3)
  1. FLUOROURACIL [Suspect]
     Active Substance: FLUOROURACIL
     Indication: Adenocarcinoma of colon
     Dosage: STRENGTH: 50 MG/ML, CONCENTRATE FOR SOLUTION FOR INFUSION, 1800MG OVER 48 HOURS EVERY 15 DAYS
     Dates: start: 20230911, end: 20230925
  2. AFLIBERCEPT [Suspect]
     Active Substance: AFLIBERCEPT
     Indication: Adenocarcinoma of colon
     Dates: start: 20230911, end: 20230911
  3. IRINOTECAN [Concomitant]
     Active Substance: IRINOTECAN
     Indication: Adenocarcinoma of colon
     Dosage: STRENGTH: 20 MG/ML, CONCENTRATE FOR SOLUTION FOR INFUSION, 210 MG EVERY 15 DAYS
     Dates: start: 20230911, end: 20230925

REACTIONS (2)
  - Headache [Recovered/Resolved]
  - Hypertension [Recovered/Resolved]

NARRATIVE: CASE EVENT DATE: 20230911
